FAERS Safety Report 6611676-2 (Version None)
Quarter: 2010Q1

REPORT INFORMATION
  Report Type: 
  Country: None (occurrence: None)
  Receive Date: 20100226
  Receipt Date: 20100226
  Transmission Date: 20100710
  Serious: Yes (Other)
  Sender: FDA-Public Use
  Company Number: None

PATIENT
  Age: 83 Year
  Sex: Male
  Weight: 80.7403 kg

DRUGS (1)
  1. ALPHAGAN P [Suspect]
     Dosage: 1 DROP EACH EYE 3X RIGHT 2X LEFT TOP
     Route: 061
     Dates: start: 20091215, end: 20100216

REACTIONS (3)
  - CONFUSIONAL STATE [None]
  - COORDINATION ABNORMAL [None]
  - VERTIGO [None]
